FAERS Safety Report 6405932-0 (Version None)
Quarter: 2009Q4

REPORT INFORMATION
  Report Type: 
  Country: None (occurrence: None)
  Receive Date: 20091019
  Receipt Date: 20091013
  Transmission Date: 20100525
  Serious: Yes (Other)
  Sender: FDA-Public Use
  Company Number: US-ASTRAZENECA-2009SE20012

PATIENT
  Age: 934 Month
  Sex: Female
  Weight: 62.1 kg

DRUGS (1)
  1. SYMBICORT [Suspect]
     Route: 055
     Dates: start: 20071013

REACTIONS (2)
  - LUNG NEOPLASM MALIGNANT [None]
  - PNEUMONIA [None]
